FAERS Safety Report 6440131-8 (Version None)
Quarter: 2009Q4

REPORT INFORMATION
  Report Type: 
  Country: None (occurrence: None)
  Receive Date: 20091113
  Receipt Date: 20090127
  Transmission Date: 20100525
  Serious: No
  Sender: FDA-Public Use
  Company Number: A0765463A

PATIENT
  Age: 65 Year
  Sex: Female

DRUGS (9)
  1. CARVEDILOL [Suspect]
     Indication: HYPERTENSION
     Dosage: 12.5MG TWICE PER DAY
     Route: 048
     Dates: start: 20080601
  2. COREG [Suspect]
     Indication: HYPERTENSION
     Dosage: 12.5MG TWICE PER DAY
     Route: 048
     Dates: start: 20080801
  3. COREG CR [Suspect]
     Indication: HYPERTENSION
     Dosage: 10MG PER DAY
     Route: 048
     Dates: start: 20080101, end: 20080601
  4. LISINOPRIL [Concomitant]
  5. MULTI-VITAMINS [Concomitant]
  6. CALCIUM [Concomitant]
  7. VITAMIN B COMPLEX CAP [Concomitant]
  8. ASCORBIC ACID [Concomitant]
  9. ESTROGEN PATCH [Concomitant]

REACTIONS (5)
  - DRUG INEFFECTIVE [None]
  - DRY EYE [None]
  - FATIGUE [None]
  - URINARY INCONTINENCE [None]
  - WEIGHT INCREASED [None]
